FAERS Safety Report 7426628-2 (Version None)
Quarter: 2011Q2

REPORT INFORMATION
  Report Type: 
  Country: None (occurrence: None)
  Receive Date: 20110420
  Receipt Date: 20110414
  Transmission Date: 20111010
  Serious: Yes (Other)
  Sender: FDA-Public Use
  Company Number: US-TEVA-265623USA

PATIENT
  Sex: Female

DRUGS (3)
  1. CLARAVIS [Suspect]
     Dosage: 60 MILLIGRAM;
     Route: 048
     Dates: start: 20100723, end: 20110101
  2. YAZ [Concomitant]
     Indication: CONTRACEPTION
     Route: 048
  3. UNKNOWN ANTIBIOTIC [Concomitant]
     Indication: STREPTOCOCCAL INFECTION

REACTIONS (1)
  - UNINTENDED PREGNANCY [None]
